FAERS Safety Report 5243983-2 (Version None)
Quarter: 2007Q1

REPORT INFORMATION
  Report Type: 
  Country: None (occurrence: None)
  Receive Date: 20070220
  Receipt Date: 20070220
  Transmission Date: 20070707
  Serious: Yes (Other)
  Sender: FDA-Public Use
  Company Number: None

PATIENT
  Age: 52 Year
  Sex: Male
  Weight: 116.3 kg

DRUGS (9)
  1. DAPTOMYCIN 500 MG VIAL [Suspect]
     Indication: PERICARDITIS
     Dosage: 680MG Q24H IV BOLUS
     Route: 040
     Dates: start: 20050207, end: 20060207
  2. CEFAZOLIN [Concomitant]
  3. COUMADIN [Concomitant]
  4. FORADIL [Concomitant]
  5. LEXAPRO [Concomitant]
  6. IBUPROFEN [Concomitant]
  7. METOPROLOL SUCCINATE [Concomitant]
  8. NASACORT AQ [Concomitant]
  9. LISINOPRIL [Concomitant]

REACTIONS (1)
  - ANAPHYLACTIC REACTION [None]
